FAERS Safety Report 16573699 (Version 1)
Quarter: 2019Q3

REPORT INFORMATION
  Report Type: Spontaneous
  Country: US (occurrence: US)
  Receive Date: 20190715
  Receipt Date: 20190715
  Transmission Date: 20191004
  Serious: No
  Sender: FDA-Public Use
  Company Number: US-009507513-1907USA004167

PATIENT
  Sex: Female

DRUGS (1)
  1. NEXPLANON [Suspect]
     Active Substance: ETONOGESTREL
     Indication: CONTRACEPTION
     Dosage: 1 DOSAGE FORM
     Route: 059
     Dates: start: 201703

REACTIONS (3)
  - Menstruation irregular [Not Recovered/Not Resolved]
  - Complication associated with device [Recovered/Resolved]
  - Device deployment issue [Not Recovered/Not Resolved]

NARRATIVE: CASE EVENT DATE: 201703
